FAERS Safety Report 5189764-X (Version None)
Quarter: 2006Q4

REPORT INFORMATION
  Report Type: 
  Country: None (occurrence: None)
  Receive Date: 20061215
  Receipt Date: 20061205
  Transmission Date: 20070319
  Serious: Yes (Hospitalization)
  Sender: FDA-Public Use
  Company Number: 2006143497

PATIENT
  Age: 66 Year
  Sex: Male
  Weight: 86 kg

DRUGS (6)
  1. SUTENT [Suspect]
     Indication: RENAL CELL CARCINOMA STAGE UNSPECIFIED
     Dosage: 50 MG (50 MG, 1 IN 1 D), ORAL
     Route: 048
     Dates: start: 20060329, end: 20061113
  2. ACCUPRIL [Concomitant]
  3. LIPITOR [Concomitant]
  4. NITROGLYCERIN [Concomitant]
  5. LEVOTHYROXINE SODIUM [Concomitant]
  6. FUCIDINE CAP [Concomitant]

REACTIONS (3)
  - DRUG INTERACTION [None]
  - HEPATOCELLULAR DAMAGE [None]
  - VACCINATION COMPLICATION [None]
